FAERS Safety Report 20119705 (Version 1)
Quarter: 2021Q4

REPORT INFORMATION
  Report Type: Report from Study
  Country: KR (occurrence: None)
  Receive Date: 20211126
  Receipt Date: 20211126
  Transmission Date: 20220303
  Serious: Yes (Death)
  Sender: FDA-Public Use
  Company Number: KR-Eisai Medical Research-EC-2021-103940

PATIENT
  Age: 51 Year
  Sex: Male
  Weight: 67.4 kg

DRUGS (2)
  1. LENVIMA [Suspect]
     Active Substance: LENVATINIB
     Indication: Hepatocellular carcinoma
     Route: 048
     Dates: start: 20200723, end: 20201221
  2. VIRREAL [Concomitant]
     Indication: Chronic hepatitis B
     Route: 048
     Dates: start: 20200720

REACTIONS (1)
  - Spontaneous bacterial peritonitis [Fatal]

NARRATIVE: CASE EVENT DATE: 20201210
